FAERS Safety Report 20050997 (Version 1)
Quarter: 2021Q4

REPORT INFORMATION
  Report Type: Spontaneous
  Country: US (occurrence: US)
  Receive Date: 20211110
  Receipt Date: 20211110
  Transmission Date: 20220303
  Serious: No
  Sender: FDA-Public Use
  Company Number: US-JNJFOC-20211051817

PATIENT

DRUGS (5)
  1. PEPCID [Suspect]
     Active Substance: FAMOTIDINE
     Indication: Hiatus hernia
     Dosage: PRODUCT TAKEN FOR YEARS
     Route: 048
  2. PEPCID [Suspect]
     Active Substance: FAMOTIDINE
     Indication: Sleep disorder therapy
  3. PEPCID [Suspect]
     Active Substance: FAMOTIDINE
     Indication: Dyspepsia
  4. PEPCID [Suspect]
     Active Substance: FAMOTIDINE
     Indication: Prophylaxis
  5. RYBELSUS [Concomitant]
     Active Substance: SEMAGLUTIDE
     Indication: Product used for unknown indication
     Route: 065

REACTIONS (3)
  - Wrong technique in product usage process [Unknown]
  - Product use in unapproved indication [Unknown]
  - Therapeutic response unexpected [Unknown]
